FAERS Safety Report 10078511 (Version 1)
Quarter: 2014Q2

REPORT INFORMATION
  Report Type: Spontaneous
  Country: US (occurrence: None)
  Receive Date: 20140411
  Receipt Date: 20140411
  Transmission Date: 20141212
  Serious: Yes (Other)
  Sender: FDA-Public Use
  Company Number: 2014US00342

PATIENT
  Sex: 0

DRUGS (5)
  1. EPIRUBICIN [Suspect]
     Indication: BREAST CANCER
     Dosage: 100MG/M2. EVERY 3 WEEKS FOR 4 CYCLES, UNKNOWN
  2. PACLITAXEL [Suspect]
     Indication: BREAST CANCER
     Dosage: 80 MG/M2  IV WEEKLY FOR 12 WEEKS , INTRAVENOUS
     Route: 042
  3. 5FLUOROURACIL [Suspect]
     Indication: BREAST CANCER
     Dosage: 500MG/M*2 EVERY 3 WEEKS FOR 4 CYCLES
  4. EVEROLIMUS [Suspect]
     Indication: BREAST CANCER
     Dosage: 30 MG PO WEEKLY FOR 12 WEEKS, ORAL
     Route: 048
  5. CYCLOPHOSPHAMIDE [Suspect]
     Dosage: 500 MG/M2 EVERY 3 WEEKS FOR 4 CYCLES
     Route: 048

REACTIONS (1)
  - Pneumonitis [None]
